FAERS Safety Report 26055586 (Version 1)
Quarter: 2025Q4

REPORT INFORMATION
  Report Type: Report from Study
  Country: US (occurrence: US)
  Receive Date: 20251117
  Receipt Date: 20251117
  Transmission Date: 20260117
  Serious: Yes (Hospitalization)
  Sender: ABBVIE
  Company Number: US-ABBVIE-6548550

PATIENT
  Sex: Male

DRUGS (1)
  1. CREON [Suspect]
     Active Substance: PANCRELIPASE AMYLASE\PANCRELIPASE LIPASE\PANCRELIPASE PROTEASE
     Indication: Product used for unknown indication
     Route: 048

REACTIONS (9)
  - Atrial fibrillation [Unknown]
  - Fall [Unknown]
  - Dehydration [Unknown]
  - Hypotension [Unknown]
  - Hypertension [Unknown]
  - Movement disorder [Unknown]
  - Asthenia [Unknown]
  - Contusion [Unknown]
  - Peripheral swelling [Unknown]
